FAERS Safety Report 24646924 (Version 2)
Quarter: 2025Q1

REPORT INFORMATION
  Report Type: Other
  Country: ES (occurrence: ES)
  Receive Date: 20241121
  Receipt Date: 20250213
  Transmission Date: 20250409
  Serious: Yes (Other)
  Sender: AMNEAL
  Company Number: ES-AMNEAL PHARMACEUTICALS-2024-AMRX-04230

PATIENT

DRUGS (15)
  1. ONGENTYS [Suspect]
     Active Substance: OPICAPONE
     Indication: Product used for unknown indication
     Route: 065
     Dates: start: 202409, end: 2024
  2. FOSCARBIDOPA\FOSLEVODOPA [Suspect]
     Active Substance: FOSCARBIDOPA\FOSLEVODOPA
     Indication: Parkinson^s disease
     Route: 058
     Dates: start: 20240826, end: 2024
  3. FOSCARBIDOPA\FOSLEVODOPA [Suspect]
     Active Substance: FOSCARBIDOPA\FOSLEVODOPA
     Route: 058
     Dates: start: 2024, end: 2024
  4. FOSCARBIDOPA\FOSLEVODOPA [Suspect]
     Active Substance: FOSCARBIDOPA\FOSLEVODOPA
     Route: 058
     Dates: start: 2024, end: 202409
  5. FOSCARBIDOPA\FOSLEVODOPA [Suspect]
     Active Substance: FOSCARBIDOPA\FOSLEVODOPA
     Route: 058
     Dates: start: 202409, end: 202410
  6. FOSCARBIDOPA\FOSLEVODOPA [Suspect]
     Active Substance: FOSCARBIDOPA\FOSLEVODOPA
     Route: 058
     Dates: start: 202410
  7. FOSCARBIDOPA\FOSLEVODOPA [Suspect]
     Active Substance: FOSCARBIDOPA\FOSLEVODOPA
     Route: 058
     Dates: start: 2024
  8. SILICON [DIMETICONE] [Concomitant]
     Indication: Product used for unknown indication
     Route: 065
     Dates: start: 2024
  9. QUETIAPINE FUMARATE [Concomitant]
     Active Substance: QUETIAPINE FUMARATE
     Indication: Product used for unknown indication
     Route: 065
     Dates: start: 2024, end: 202410
  10. QUETIAPINE FUMARATE [Concomitant]
     Active Substance: QUETIAPINE FUMARATE
     Route: 065
     Dates: start: 202410
  11. QUETIAPINE FUMARATE [Concomitant]
     Active Substance: QUETIAPINE FUMARATE
     Route: 065
     Dates: start: 202410
  12. PROMETAX [RIVASTIGMINE] [Concomitant]
     Indication: Product used for unknown indication
     Route: 065
     Dates: start: 2024
  13. RIVASTIGMINE [RIVASTIGMINE HYDROGEN TARTRATE] [Concomitant]
     Indication: Product used for unknown indication
     Route: 065
     Dates: start: 2024
  14. SINEMET [Concomitant]
     Active Substance: CARBIDOPA\LEVODOPA
     Indication: Parkinson^s disease
     Dosage: 0.5 DOSAGE FORM, QD
     Route: 048
     Dates: start: 20250108
  15. LEXXEMA [Concomitant]
     Indication: Product used for unknown indication
     Route: 065

REACTIONS (22)
  - Akinesia [Unknown]
  - Hallucination [Not Recovered/Not Resolved]
  - Hallucination, visual [Unknown]
  - Hallucination [Unknown]
  - Hallucination [Not Recovered/Not Resolved]
  - Freezing phenomenon [Recovered/Resolved]
  - Bradykinesia [Unknown]
  - Confusional state [Unknown]
  - Infusion site nodule [Not Recovered/Not Resolved]
  - Skin mass [Unknown]
  - Freezing phenomenon [Recovered/Resolved]
  - Unevaluable event [Unknown]
  - Disorientation [Recovered/Resolved]
  - Daydreaming [Not Recovered/Not Resolved]
  - Disorientation [Not Recovered/Not Resolved]
  - Akinesia [Unknown]
  - Drug intolerance [Not Recovered/Not Resolved]
  - Oropharyngeal pain [Unknown]
  - Infusion site bruising [Unknown]
  - Depressed mood [Unknown]
  - Somnolence [Unknown]
  - Insomnia [Not Recovered/Not Resolved]

NARRATIVE: CASE EVENT DATE: 20240101
